FAERS Safety Report 8868638 (Version 2)
Quarter: 2012Q4

REPORT INFORMATION
  Report Type: 
  Country: US (occurrence: US)
  Receive Date: 20121024
  Receipt Date: 20121027
  Transmission Date: 20130627
  Serious: Yes (Other)
  Sender: FDA-Public Use
  Company Number: US-US-EMD SERONO, INC.-7168660

PATIENT
  Sex: Female
  Weight: 51 kg

DRUGS (2)
  1. REBIF [Suspect]
     Indication: RELAPSING-REMITTING MULTIPLE SCLEROSIS
     Route: 058
     Dates: start: 20100731, end: 201205
  2. REBIF [Suspect]
     Route: 058
     Dates: start: 201208

REACTIONS (3)
  - Abortion spontaneous [Unknown]
  - Injection site erythema [Not Recovered/Not Resolved]
  - Maternal exposure timing unspecified [Unknown]
